FAERS Safety Report 12736722 (Version 1)
Quarter: 2016Q3

REPORT INFORMATION
  Report Type: Spontaneous
  Country: US (occurrence: US)
  Receive Date: 20160912
  Receipt Date: 20160912
  Transmission Date: 20161109
  Serious: No
  Sender: FDA-Public Use
  Company Number: US-CELGENEUS-USA-2016090550

PATIENT
  Sex: Female

DRUGS (1)
  1. OTEZLA [Suspect]
     Active Substance: APREMILAST
     Indication: PSORIATIC ARTHROPATHY
     Dosage: OTEZLA STARTER PACK
     Route: 048
     Dates: end: 20160829

REACTIONS (3)
  - Gastrointestinal disorder [Not Recovered/Not Resolved]
  - Insomnia [Recovered/Resolved]
  - Depression [Recovered/Resolved]
